FAERS Safety Report 13656697 (Version 4)
Quarter: 2017Q3

REPORT INFORMATION
  Report Type: Spontaneous
  Country: CA (occurrence: CA)
  Receive Date: 20170615
  Receipt Date: 20170919
  Transmission Date: 20171127
  Serious: Yes (Other)
  Sender: FDA-Public Use
  Company Number: CA-PFIZER INC-2016447147

PATIENT
  Age: 45 Year
  Sex: Female

DRUGS (7)
  1. BUPROPION. [Concomitant]
     Active Substance: BUPROPION
     Dosage: UNK
  2. MIRTAZAPINE. [Concomitant]
     Active Substance: MIRTAZAPINE
     Dosage: UNK
  3. CELECOXIB. [Concomitant]
     Active Substance: CELECOXIB
     Dosage: UNK
  4. LETROZOLE. [Concomitant]
     Active Substance: LETROZOLE
     Dosage: UNK
  5. GABAPENTIN. [Concomitant]
     Active Substance: GABAPENTIN
     Dosage: UNK
  6. VITAMIN D [Concomitant]
     Active Substance: CHOLECALCIFEROL
     Dosage: UNK
  7. IBRANCE [Suspect]
     Active Substance: PALBOCICLIB
     Indication: BREAST CANCER
     Dosage: 125 MG, CYCLIC (DAILY X21 DAYS, STOP FOR 7 DAYS THEN REPEAT CYCLE)
     Route: 048
     Dates: start: 20160616

REACTIONS (10)
  - Rash pruritic [Not Recovered/Not Resolved]
  - Rash erythematous [Not Recovered/Not Resolved]
  - Dry eye [Recovering/Resolving]
  - Nasal dryness [Recovering/Resolving]
  - White blood cell count decreased [Unknown]
  - Pulmonary thrombosis [Unknown]
  - Dry skin [Recovering/Resolving]
  - Stomatitis [Not Recovered/Not Resolved]
  - Seizure [Unknown]
  - Neutrophil count decreased [Not Recovered/Not Resolved]

NARRATIVE: CASE EVENT DATE: 2016
